FAERS Safety Report 16724814 (Version 1)
Quarter: 2019Q3

REPORT INFORMATION
  Report Type: Spontaneous
  Country: US (occurrence: US)
  Receive Date: 20190704
  Receipt Date: 20190704
  Transmission Date: 20191005
  Serious: Yes (Hospitalization)
  Sender: FDA-Public Use
  Company Number: None

PATIENT
  Age: 83 Year
  Sex: Male
  Weight: 74.84 kg

DRUGS (1)
  1. AMIODARONE [Suspect]
     Active Substance: AMIODARONE
     Indication: ATRIAL FIBRILLATION
     Route: 048
     Dates: start: 20181127, end: 20190612

REACTIONS (4)
  - Hypoxia [None]
  - Tachypnoea [None]
  - Respiratory depression [None]
  - Toxicity to various agents [None]

NARRATIVE: CASE EVENT DATE: 20190614
